FAERS Safety Report 7598560-5 (Version None)
Quarter: 2011Q3

REPORT INFORMATION
  Report Type: 
  Country: None (occurrence: None)
  Receive Date: 20110708
  Receipt Date: 20110629
  Transmission Date: 20111222
  Serious: Yes (Hospitalization)
  Sender: FDA-Public Use
  Company Number: BR-ASTRAZENECA-2011SE39535

PATIENT
  Age: 78 Year
  Sex: Female
  Weight: 69 kg

DRUGS (2)
  1. GLIFAGE XR [Concomitant]
     Indication: DIABETES MELLITUS
     Dosage: TWO TIMES A DAY
     Route: 048
     Dates: start: 20060101
  2. SEROQUEL [Suspect]
     Indication: BIPOLAR DISORDER
     Route: 048
     Dates: start: 20100101

REACTIONS (4)
  - ANAEMIA [None]
  - HAEMATOCHEZIA [None]
  - HAEMATEMESIS [None]
  - ULCER [None]
